FAERS Safety Report 8254698-0 (Version None)
Quarter: 2012Q2

REPORT INFORMATION
  Report Type: 
  Country: None (occurrence: None)
  Receive Date: 20120403
  Receipt Date: 20120326
  Transmission Date: 20120825
  Serious: Yes (Hospitalization)
  Sender: FDA-Public Use
  Company Number: US-BAYER-2011-124533

PATIENT
  Age: 28 Year
  Sex: Female
  Weight: 158.73 kg

DRUGS (24)
  1. YAZ [Suspect]
     Dosage: UNK
     Route: 048
     Dates: start: 20080701, end: 20090301
  2. IBUPROFEN [Concomitant]
     Dosage: 800 MG, UNK
     Route: 048
     Dates: start: 20080707
  3. ALPRAZOLAM [Concomitant]
     Dosage: 0.5 MG, UNK
     Route: 048
     Dates: start: 20080709
  4. ELMIRON [Concomitant]
     Dosage: 100 MG, UNK
     Route: 048
     Dates: start: 20080709
  5. SINGULAIR [Concomitant]
     Dosage: 10 MG, UNK
     Route: 048
     Dates: start: 20080707
  6. CYCLOBENZAPRINE HCL [Concomitant]
     Dosage: 5 MG, UNK
     Route: 048
     Dates: start: 20080721
  7. LAMOTRGINE [Concomitant]
     Dosage: 200 MG, UNK
     Route: 048
     Dates: start: 20090117
  8. LACTIMAL [Concomitant]
     Dosage: 200 MG, UNK
     Route: 048
     Dates: start: 20080707
  9. UREA [Concomitant]
     Dosage: 40 %, UNK
     Route: 061
     Dates: start: 20080707
  10. ALBUTEROL [Concomitant]
     Dosage: 90 ?G, UNK
     Dates: start: 20080707
  11. POTASSIUM CITRATE [Concomitant]
     Dosage: 10 MEQ, UNK
     Route: 048
     Dates: start: 20080709
  12. AMOXICILLIN [Concomitant]
     Dosage: 500 MG, UNK
     Dates: start: 20090207
  13. MUPIROCIN [Concomitant]
     Dosage: 2 %, UNK
     Route: 061
     Dates: start: 20081210
  14. AMMONIUM LACTATE [Concomitant]
     Dosage: 12 %, UNK
     Route: 061
     Dates: start: 20080707
  15. LORATADINE [Concomitant]
     Dosage: 10 MG, UNK
     Route: 048
     Dates: start: 20080707
  16. ASTELIN [Concomitant]
     Dosage: 137 ?G, UNK
     Dates: start: 20081004
  17. ADVAIR DISKUS 100/50 [Concomitant]
     Dosage: 250/50 MG
     Route: 045
     Dates: start: 20080707
  18. EPIPEN [Concomitant]
     Dosage: 0.3 MG, UNK
     Route: 030
     Dates: start: 20080825
  19. HYDROCODONE BITARTRATE AND ACETAMINOPHEN [Concomitant]
     Dosage: UNK
     Route: 048
     Dates: start: 20080719
  20. HYDROXYZINE HCL [Concomitant]
     Dosage: 25 MG, UNK
     Route: 048
     Dates: start: 20080707
  21. SERTRALINE HYDROCHLORIDE [Concomitant]
     Dosage: 100 MG, UNK
     Route: 048
     Dates: start: 20080707
  22. ZOLPIDEM TARTRATE [Concomitant]
     Dosage: 10 MG, UNK
     Route: 048
     Dates: start: 20080825
  23. PROVIGIL [Concomitant]
     Dosage: 200 MG, UNK
     Route: 048
     Dates: start: 20081008
  24. VENTOLIN HFA [Concomitant]
     Dosage: 90 ?G, UNK
     Dates: start: 20090203

REACTIONS (7)
  - EMOTIONAL DISTRESS [None]
  - VOMITING [None]
  - ABDOMINAL PAIN [None]
  - CHOLELITHIASIS [None]
  - PAIN [None]
  - CHOLECYSTITIS CHRONIC [None]
  - DIARRHOEA [None]
